FAERS Safety Report 10503345 (Version 2)
Quarter: 2014Q4

REPORT INFORMATION
  Report Type: Spontaneous
  Country: US (occurrence: US)
  Receive Date: 20141008
  Receipt Date: 20141015
  Transmission Date: 20150528
  Serious: Yes (Death, Life-Threatening, Hospitalization, Other)
  Sender: FDA-Public Use
  Company Number: US-009507513-1410USA001368

PATIENT
  Sex: Male

DRUGS (2)
  1. RIFAMPIN. [Interacting]
     Active Substance: RIFAMPIN
     Dosage: UNK
  2. ISENTRESS [Suspect]
     Active Substance: RALTEGRAVIR POTASSIUM
     Indication: HIV INFECTION
     Dosage: TWICE A DAY
     Route: 048

REACTIONS (5)
  - Drug interaction [Unknown]
  - Renal failure [Unknown]
  - Death [Fatal]
  - No therapeutic response [Unknown]
  - Malnutrition-inflammation-atherosclerosis syndrome [Unknown]

NARRATIVE: CASE EVENT DATE: 201312
